FAERS Safety Report 8561137-9 (Version None)
Quarter: 2012Q3

REPORT INFORMATION
  Report Type: 
  Country: None (occurrence: None)
  Receive Date: 20120802
  Receipt Date: 20120726
  Transmission Date: 20120928
  Serious: Yes (Other)
  Sender: FDA-Public Use
  Company Number: JP-VERTEX PHARMACEUTICALS INC.-AE-2012-007170

PATIENT
  Age: 70 Year
  Sex: Male

DRUGS (17)
  1. TELAVIC (TELAPREVIR) [Suspect]
     Route: 048
     Dates: start: 20120329
  2. RIBAVIRIN [Concomitant]
     Route: 048
     Dates: start: 20120202, end: 20120307
  3. PEGINTERFERON ALFA-2B [Concomitant]
     Indication: HEPATITIS C
     Route: 058
     Dates: start: 20120222, end: 20120229
  4. RIBAVIRIN [Concomitant]
     Route: 048
     Dates: start: 20120628, end: 20120725
  5. TELAVIC (TELAPREVIR) [Suspect]
     Indication: HEPATITIS C
     Route: 048
     Dates: start: 20120202, end: 20120222
  6. TELAVIC (TELAPREVIR) [Suspect]
     Route: 048
     Dates: start: 20120315
  7. PEGINTERFERON ALFA-2B [Concomitant]
     Route: 058
     Dates: start: 20120308
  8. MEILAX [Concomitant]
     Route: 048
     Dates: start: 20120322
  9. DOGMATYL [Concomitant]
     Route: 048
     Dates: start: 20120322
  10. PEGINTERFERON ALFA-2B [Concomitant]
     Route: 058
     Dates: end: 20120719
  11. RIBAVIRIN [Concomitant]
     Route: 048
  12. TELAVIC (TELAPREVIR) [Suspect]
     Route: 048
     Dates: start: 20120223, end: 20120314
  13. RIBAVIRIN [Concomitant]
     Route: 048
     Dates: start: 20120308
  14. RIBAVIRIN [Concomitant]
     Route: 048
     Dates: start: 20120511
  15. TELAVIC (TELAPREVIR) [Suspect]
     Route: 048
     Dates: start: 20120405
  16. PEGINTERFERON ALFA-2B [Concomitant]
     Route: 058
     Dates: start: 20120301, end: 20120307
  17. PEGINTERFERON ALFA-2B [Concomitant]
     Route: 058

REACTIONS (1)
  - DEPRESSION [None]
